FAERS Safety Report 22524604 (Version 1)
Quarter: 2023Q2

REPORT INFORMATION
  Report Type: Spontaneous
  Country: US (occurrence: None)
  Receive Date: 20230605
  Receipt Date: 20230605
  Transmission Date: 20230722
  Serious: No
  Sender: FDA-Public Use
  Company Number: None

PATIENT
  Age: 62 Year

DRUGS (1)
  1. AMBRISENTAN [Suspect]
     Active Substance: AMBRISENTAN

REACTIONS (6)
  - Dizziness [None]
  - Respiratory disorder [None]
  - Upper-airway cough syndrome [None]
  - Nasal congestion [None]
  - Infection [None]
  - Therapy interrupted [None]

NARRATIVE: CASE EVENT DATE: 20230605
